FAERS Safety Report 4763453-5 (Version None)
Quarter: 2005Q3

REPORT INFORMATION
  Report Type: 
  Country: None (occurrence: None)
  Receive Date: 20050908
  Receipt Date: 20050824
  Transmission Date: 20060218
  Serious: Yes (Hospitalization)
  Sender: FDA-Public Use
  Company Number: HQWYE129226AUG05

PATIENT
  Sex: Female
  Weight: 45 kg

DRUGS (13)
  1. ENBREL [Suspect]
     Indication: RHEUMATOID ARTHRITIS
     Route: 058
     Dates: start: 20050601, end: 20050723
  2. INDOMETHACIN [Concomitant]
     Route: 048
     Dates: start: 20040601
  3. PREDNISOLONE [Concomitant]
     Route: 048
  4. GLAKAY [Concomitant]
     Route: 048
  5. AMLODIPINE BESYLATE [Concomitant]
     Route: 048
     Dates: start: 20040601
  6. ALENDRONATE SODIUM [Concomitant]
     Route: 048
     Dates: start: 20040601
  7. ALUMINIUM HYDROXIDE GEL, DRIED [Concomitant]
     Route: 048
     Dates: start: 20040601
  8. SELBEX [Concomitant]
     Route: 048
     Dates: start: 20040601
  9. THIAMINE HCL [Concomitant]
     Route: 048
     Dates: start: 20040601
  10. SENNA LEAF [Concomitant]
     Route: 048
     Dates: start: 20040601
  11. CALCIUM CARBONATE [Concomitant]
     Dates: start: 20040601
  12. MAGNESIUM CARBONATE [Concomitant]
     Dates: start: 20040601
  13. SODIUM BICARBONATE [Concomitant]
     Dates: start: 20040601

REACTIONS (3)
  - BLOOD LACTATE DEHYDROGENASE INCREASED [None]
  - BLOOD POTASSIUM DECREASED [None]
  - VASCULITIS [None]
